FAERS Safety Report 9697491 (Version 2)
Quarter: 2013Q4

REPORT INFORMATION
  Report Type: Report from Study
  Country: CL (occurrence: CL)
  Receive Date: 20131120
  Receipt Date: 20131224
  Transmission Date: 20140711
  Serious: Yes (Hospitalization)
  Sender: FDA-Public Use
  Company Number: PHHY2013CL131967

PATIENT
  Age: 93 Year
  Sex: Female

DRUGS (1)
  1. TAREG [Suspect]
     Indication: ARRHYTHMIA
     Dosage: 160 MG, DAILY

REACTIONS (1)
  - Hiatus hernia [Recovered/Resolved]
